FAERS Safety Report 20441629 (Version 2)
Quarter: 2022Q1

REPORT INFORMATION
  Report Type: Spontaneous
  Country: US (occurrence: US)
  Receive Date: 20220208
  Receipt Date: 20220224
  Transmission Date: 20220423
  Serious: Yes (Other)
  Sender: FDA-Public Use
  Company Number: US-AUROBINDO-AUR-APL-2022-003644

PATIENT
  Age: 13 Month
  Sex: Male
  Weight: 8.8 kg

DRUGS (1)
  1. ACETAMINOPHEN [Suspect]
     Active Substance: ACETAMINOPHEN
     Indication: Irritability
     Dosage: 800 AND 900MG (90.9?102.3 MG/KG)
     Route: 042

REACTIONS (1)
  - Accidental overdose [Unknown]
